FAERS Safety Report 6250865-6 (Version None)
Quarter: 2009Q2

REPORT INFORMATION
  Report Type: 
  Country: None (occurrence: None)
  Receive Date: 20090630
  Receipt Date: 20090617
  Transmission Date: 20091009
  Serious: Yes (Congenital Anomaly, Other)
  Sender: FDA-Public Use
  Company Number: IL-TYCO HEALTHCARE/MALLINCKRODT-T200901219

PATIENT

DRUGS (5)
  1. FLUOXETINE HCL [Suspect]
     Route: 064
  2. CARBAMAZEPINE [Suspect]
     Route: 064
  3. CLONAZEPAM [Concomitant]
     Route: 064
  4. ERYTHROMYCIN [Concomitant]
     Route: 064
  5. LEVONORGESTREL AND ETHINYL ESTRADIOL [Concomitant]
     Route: 064

REACTIONS (2)
  - DRUG EXPOSURE DURING PREGNANCY [None]
  - HEART DISEASE CONGENITAL [None]
